FAERS Safety Report 5163808-3 (Version None)
Quarter: 2006Q4

REPORT INFORMATION
  Report Type: 
  Country: None (occurrence: None)
  Receive Date: 20061124
  Receipt Date: 20061114
  Transmission Date: 20070319
  Serious: Yes (Other)
  Sender: FDA-Public Use
  Company Number: 2006143313

PATIENT
  Sex: Male

DRUGS (2)
  1. CHANTIX [Suspect]
     Indication: SMOKING CESSATION THERAPY
     Dosage: 0.5 MG (0.5 MG,1 IN 1 D)
     Dates: start: 20061101, end: 20061120
  2. REQUIP [Concomitant]

REACTIONS (2)
  - CONDITION AGGRAVATED [None]
  - RESTLESS LEGS SYNDROME [None]
